FAERS Safety Report 5131133-2 (Version None)
Quarter: 2006Q3

REPORT INFORMATION
  Report Type: 
  Country: None (occurrence: None)
  Receive Date: 20060830
  Receipt Date: 20051121
  Transmission Date: 20061208
  Serious: Yes (Hospitalization)
  Sender: FDA-Public Use
  Company Number: CIP05002712

PATIENT
  Age: 85 Year
  Sex: Female

DRUGS (7)
  1. ASACOL [Suspect]
     Indication: COLITIS ULCERATIVE
     Dosage: SEE IMAGE
     Route: 048
     Dates: start: 20051101, end: 20051101
  2. ASACOL [Suspect]
     Indication: COLITIS ULCERATIVE
     Dosage: SEE IMAGE
     Route: 048
     Dates: start: 20020101
  3. PLAVIX [Concomitant]
  4. SINGULAIR [Concomitant]
  5. TENORMIN [Concomitant]
  6. ZANTAC [Concomitant]
  7. ACETAMINOPHEN [Concomitant]

REACTIONS (3)
  - ABDOMINAL PAIN [None]
  - MEDICATION RESIDUE [None]
  - NAUSEA [None]
